FAERS Safety Report 14342780 (Version 1)
Quarter: 2017Q4

REPORT INFORMATION
  Report Type: Spontaneous
  Country: US (occurrence: US)
  Receive Date: 20171229
  Receipt Date: 20171229
  Transmission Date: 20180321
  Serious: Yes (Hospitalization)
  Sender: FDA-Public Use
  Company Number: None

PATIENT
  Age: 65 Year
  Sex: Male
  Weight: 69.6 kg

DRUGS (1)
  1. ELIQUIS [Suspect]
     Active Substance: APIXABAN
     Indication: THROMBOSIS
     Route: 048
     Dates: start: 20171221, end: 20171227

REACTIONS (10)
  - Constipation [None]
  - Melaena [None]
  - Nausea [None]
  - Full blood count decreased [None]
  - Osteoarthritis [None]
  - Fatigue [None]
  - Decreased appetite [None]
  - Musculoskeletal pain [None]
  - Condition aggravated [None]
  - Vomiting [None]

NARRATIVE: CASE EVENT DATE: 20171228
